FAERS Safety Report 16412637 (Version 1)
Quarter: 2019Q2

REPORT INFORMATION
  Report Type: Spontaneous
  Country: CZ (occurrence: CZ)
  Receive Date: 20190611
  Receipt Date: 20190611
  Transmission Date: 20190711
  Serious: Yes (Other)
  Sender: FDA-Public Use
  Company Number: CZ-PROVELL PHARMACEUTICALS-2068054

PATIENT
  Sex: Female

DRUGS (2)
  1. SUMAMED [Suspect]
     Active Substance: AZITHROMYCIN ANHYDROUS
  2. EUTHYROX [Suspect]
     Active Substance: LEVOTHYROXINE SODIUM
     Indication: PRODUCT USED FOR UNKNOWN INDICATION

REACTIONS (9)
  - Anaemia [Recovered/Resolved]
  - Irritable bowel syndrome [None]
  - Menorrhagia [None]
  - Haemorrhoids [None]
  - Stress [None]
  - Diarrhoea [Recovered/Resolved]
  - Helicobacter infection [None]
  - Chronic gastritis [None]
  - Flatulence [None]
